FAERS Safety Report 8854813 (Version 2)
Quarter: 2012Q4

REPORT INFORMATION
  Report Type: 
  Country: KR (occurrence: KR)
  Receive Date: 20121023
  Receipt Date: 20121112
  Transmission Date: 20130627
  Serious: Yes (Other)
  Sender: FDA-Public Use
  Company Number: PHHY2012KR093962

PATIENT

DRUGS (1)
  1. OXCARBAZEPINE [Suspect]
     Indication: BENIGN ROLANDIC EPILEPSY
     Dosage: 8-10 mg/kg/day in two divided doses and increased at an interval of 2 to 4 weeks

REACTIONS (1)
  - Memory impairment [Recovered/Resolved]
